FAERS Safety Report 11309935 (Version 1)
Quarter: 2015Q3

REPORT INFORMATION
  Report Type: Spontaneous
  Country: US (occurrence: US)
  Receive Date: 20150724
  Receipt Date: 20150724
  Transmission Date: 20151125
  Serious: No
  Sender: FDA-Public Use
  Company Number: US-LUNDBECK-DKLU2001097

PATIENT
  Sex: Female

DRUGS (5)
  1. AFINITOR [Suspect]
     Active Substance: EVEROLIMUS
     Indication: PRODUCT USED FOR UNKNOWN INDICATION
     Route: 065
  2. SABRIL [Suspect]
     Active Substance: VIGABATRIN
     Indication: TUBEROUS SCLEROSIS
     Route: 048
     Dates: start: 201405
  3. AFINITOR [Suspect]
     Active Substance: EVEROLIMUS
     Route: 065
  4. SABRIL [Suspect]
     Active Substance: VIGABATRIN
     Route: 048
     Dates: start: 201405
  5. SABRIL [Suspect]
     Active Substance: VIGABATRIN
     Indication: CENTRAL NERVOUS SYSTEM NEOPLASM
     Route: 048
     Dates: start: 201405

REACTIONS (1)
  - Aggression [Unknown]
